FAERS Safety Report 10190779 (Version 2)
Quarter: 2014Q2

REPORT INFORMATION
  Report Type: Spontaneous
  Country: US (occurrence: US)
  Receive Date: 20140523
  Receipt Date: 20140620
  Transmission Date: 20141212
  Serious: Yes (Other)
  Sender: FDA-Public Use
  Company Number: US-BEH-2014042679

PATIENT
  Sex: Female
  Weight: 85 kg

DRUGS (27)
  1. PRIVIGEN [Suspect]
     Indication: IMMUNODEFICIENCY
     Dosage: OVER 4-6 HOURS
     Route: 042
  2. PRIVIGEN [Suspect]
     Dosage: OVER 4-6 HOURS
     Route: 042
  3. DIPHENHYDRAMINE [Concomitant]
  4. NORMAL SALINE [Concomitant]
  5. SODIUM CHLORIDE [Concomitant]
  6. EPI-PEN [Concomitant]
  7. SOLU-MEDROL [Concomitant]
  8. PREDNISONE [Concomitant]
  9. LANTUS [Concomitant]
  10. TRAMADOL [Concomitant]
  11. LORAZEPAM [Concomitant]
  12. METFORMIN [Concomitant]
  13. VENLAFAXINE [Concomitant]
  14. RANITIDINE [Concomitant]
  15. FENOFIBRATE [Concomitant]
  16. NOVOLOG [Concomitant]
  17. BACLOFEN [Concomitant]
  18. FAMOTIDINE [Concomitant]
  19. LAMICTAL [Concomitant]
  20. SYMBICORT [Concomitant]
  21. ZOLPIDEM [Concomitant]
  22. QUINAPRIL [Concomitant]
  23. XOPENEX [Concomitant]
  24. VITAMIN D3 [Concomitant]
  25. DEXILANT [Concomitant]
  26. MONTELUKAST [Concomitant]
  27. METOCLOPRAMIDE [Concomitant]

REACTIONS (2)
  - Lower respiratory tract infection [Unknown]
  - Lung infection [Unknown]
